FAERS Safety Report 10277224 (Version 1)
Quarter: 2014Q3

REPORT INFORMATION
  Report Type: Spontaneous
  Country: AU (occurrence: AU)
  Receive Date: 20140703
  Receipt Date: 20140703
  Transmission Date: 20150326
  Serious: Yes (Disabling)
  Sender: FDA-Public Use
  Company Number: AU-ABBVIE-14P-008-1253841-00

PATIENT
  Age: 76 Year
  Sex: Male
  Weight: 102 kg

DRUGS (2)
  1. TESTOGEL [Suspect]
     Active Substance: TESTOSTERONE
     Indication: HYPOGONADISM
     Dosage: IN 5 GM OF GEL
     Route: 062
  2. TESTOGEL [Suspect]
     Active Substance: TESTOSTERONE
     Dosage: 2 WEEKS AGO
     Route: 062

REACTIONS (3)
  - Polycythaemia [Recovered/Resolved with Sequelae]
  - Weight decreased [Unknown]
  - Transient ischaemic attack [Recovered/Resolved with Sequelae]

NARRATIVE: CASE EVENT DATE: 201309
